FAERS Safety Report 10551815 (Version 5)
Quarter: 2014Q4

REPORT INFORMATION
  Report Type: Report from Study
  Country: JP (occurrence: JP)
  Receive Date: 20141029
  Receipt Date: 20141231
  Transmission Date: 20150529
  Serious: Yes (Death, Life-Threatening, Hospitalization, Other)
  Sender: FDA-Public Use
  Company Number: JP-PFIZER INC-2014170477

PATIENT
  Age: 78 Year
  Sex: Female
  Weight: 74 kg

DRUGS (5)
  1. ZYVOX [Suspect]
     Active Substance: LINEZOLID
     Indication: STAPHYLOCOCCAL BACTERAEMIA
     Dosage: 600 MG, 2X/DAY
     Route: 048
     Dates: start: 20120217, end: 20120302
  2. VANCOMYCIN KOBAYASHI [Concomitant]
     Indication: STAPHYLOCOCCAL BACTERAEMIA
     Dosage: 1000 MG, 2X/DAY
     Route: 041
     Dates: start: 20120111, end: 20120116
  3. VANCOMYCIN KOBAYASHI [Concomitant]
     Indication: MUSCLE ABSCESS
     Dosage: 500 MG, 2X/DAY
     Route: 041
     Dates: start: 20120117, end: 20120123
  4. ZYVOX [Suspect]
     Active Substance: LINEZOLID
     Indication: STAPHYLOCOCCAL BACTERAEMIA
     Dosage: 600 MG, 2X/DAY
     Route: 041
     Dates: start: 20120204, end: 20120216
  5. VANCOMYCIN KOBAYASHI [Concomitant]
     Dosage: 500 MG, 1X/DAY
     Route: 041
     Dates: start: 20120127, end: 20120203

REACTIONS (2)
  - Thrombocytopenia [Not Recovered/Not Resolved]
  - Septic shock [Fatal]

NARRATIVE: CASE EVENT DATE: 20120220
